FAERS Safety Report 6336636-0 (Version None)
Quarter: 2009Q3

REPORT INFORMATION
  Report Type: 
  Country: None (occurrence: None)
  Receive Date: 20090831
  Receipt Date: 20090831
  Transmission Date: 20100115
  Serious: Yes (Other)
  Sender: FDA-Public Use
  Company Number: None

PATIENT
  Age: 28 Year
  Sex: Female
  Weight: 70.3075 kg

DRUGS (1)
  1. AMPHETAMINES [Suspect]
     Indication: ATTENTION DEFICIT/HYPERACTIVITY DISORDER
     Dosage: 20 MG QDAY PO
     Route: 048
     Dates: start: 20090630, end: 20090829

REACTIONS (5)
  - DIARRHOEA [None]
  - DIZZINESS [None]
  - HEART RATE INCREASED [None]
  - NAUSEA [None]
  - PALPITATIONS [None]
